FAERS Safety Report 7226938 (Version 8)
Quarter: 2015Q2

REPORT INFORMATION
  Report Type: Spontaneous
  Country: US (occurrence: US)
  Receive Date: 20091222
  Receipt Date: 20150518
  Transmission Date: 20150821
  Serious: Yes (Hospitalization, Other)
  Sender: FDA-Public Use
  Company Number: US-ASTRAZENECA-2009UW04135

PATIENT
  Age: 83 Year
  Sex: Female
  Weight: 70.8 kg

DRUGS (13)
  1. NEXIUM [Suspect]
     Active Substance: ESOMEPRAZOLE MAGNESIUM
     Indication: IRRITABLE BOWEL SYNDROME
     Dosage: 40 MG, EVERY THIRD DAY
     Route: 048
     Dates: start: 201010, end: 2012
  2. NEXIUM [Suspect]
     Active Substance: ESOMEPRAZOLE MAGNESIUM
     Dosage: 22.5 MG, 1 CAPSULE EVERY THIRD DAY
     Route: 048
     Dates: start: 201503
  3. CORTISONE [Concomitant]
     Active Substance: CORTISONE\HYDROCORTISONE
  4. NERVE PILLS [Concomitant]
     Indication: NERVOUS SYSTEM DISORDER
     Dosage: FROM WHOLE FOODS MARKET
     Route: 060
  5. ASPIRIN. [Concomitant]
     Active Substance: ASPIRIN
  6. PRAVACHOL [Concomitant]
     Active Substance: PRAVASTATIN SODIUM
  7. PRILOSEC [Suspect]
     Active Substance: OMEPRAZOLE MAGNESIUM
     Route: 048
  8. NEXIUM [Suspect]
     Active Substance: ESOMEPRAZOLE MAGNESIUM
     Indication: GASTROOESOPHAGEAL REFLUX DISEASE
     Dosage: 40 MG, EVERY THIRD DAY
     Route: 048
     Dates: start: 201010, end: 2012
  9. METHOTREXATE [Concomitant]
     Active Substance: METHOTREXATE
  10. CRESTOR [Suspect]
     Active Substance: ROSUVASTATIN CALCIUM
     Indication: BLOOD CHOLESTEROL ABNORMAL
     Route: 048
  11. TUMS [Concomitant]
     Active Substance: CALCIUM CARBONATE
  12. CRESTOR [Suspect]
     Active Substance: ROSUVASTATIN CALCIUM
     Indication: BLOOD CHOLESTEROL ABNORMAL
     Route: 048
     Dates: start: 201310
  13. PREDISONE [Suspect]
     Active Substance: PREDNISONE
     Route: 065

REACTIONS (16)
  - Escherichia infection [Unknown]
  - Intentional product misuse [Unknown]
  - Hypertension [Unknown]
  - Off label use [Unknown]
  - Back pain [Unknown]
  - Musculoskeletal pain [Unknown]
  - Haemorrhage [Recovered/Resolved]
  - Vomiting [Recovered/Resolved]
  - Adverse event [Unknown]
  - Fatigue [Unknown]
  - Skin atrophy [Unknown]
  - Gastrooesophageal reflux disease [Unknown]
  - Skin discolouration [Unknown]
  - Weight decreased [Unknown]
  - Basal cell carcinoma [Unknown]
  - Coeliac disease [Unknown]

NARRATIVE: CASE EVENT DATE: 2010
